FAERS Safety Report 20428600 (Version 2)
Quarter: 2022Q1

REPORT INFORMATION
  Report Type: Spontaneous
  Country: MA (occurrence: MA)
  Receive Date: 20220204
  Receipt Date: 20220208
  Transmission Date: 20220424
  Serious: Yes (Hospitalization)
  Sender: FDA-Public Use
  Company Number: MA-ABBOTT-2022A-1345397

PATIENT
  Age: 5 Year
  Sex: Male
  Weight: 14 kg

DRUGS (3)
  1. CLARITHROMYCIN [Suspect]
     Active Substance: CLARITHROMYCIN
     Indication: Angina pectoris
     Route: 065
  2. IBUPROFEN [Concomitant]
     Active Substance: IBUPROFEN
     Indication: Angina pectoris
  3. ECHINACEA PURPUREA;PROPOLIS [Concomitant]
     Indication: Angina pectoris

REACTIONS (5)
  - Faeces discoloured [Recovering/Resolving]
  - Anaemia [Unknown]
  - Hepatitis [Recovered/Resolved]
  - Abdominal pain [Unknown]
  - Fatigue [Unknown]

NARRATIVE: CASE EVENT DATE: 20220101
